FAERS Safety Report 23325330 (Version 1)
Quarter: 2023Q4

REPORT INFORMATION
  Report Type: Report from Study
  Country: FR (occurrence: FR)
  Receive Date: 20231221
  Receipt Date: 20231221
  Transmission Date: 20240110
  Serious: Yes (Death)
  Sender: FDA-Public Use
  Company Number: FR-002147023-NVSC2023FR270485

PATIENT
  Sex: Male
  Weight: 172 kg

DRUGS (3)
  1. PLUVICTO [Suspect]
     Active Substance: LUTETIUM LU-177 VIPIVOTIDE TETRAXETAN
     Indication: Prostate cancer
     Dosage: 6850 MBQ, ONCE
     Route: 065
     Dates: start: 20230717, end: 20230717
  2. PLUVICTO [Suspect]
     Active Substance: LUTETIUM LU-177 VIPIVOTIDE TETRAXETAN
     Dosage: 7018 MBQ, ONCE
     Route: 065
     Dates: start: 20230828, end: 20230828
  3. PLUVICTO [Suspect]
     Active Substance: LUTETIUM LU-177 VIPIVOTIDE TETRAXETAN
     Dosage: 6876 MBQ, ONCE
     Route: 065
     Dates: start: 20231009, end: 20231009

REACTIONS (2)
  - Acute kidney injury [Fatal]
  - Urinary tract infection [Fatal]
